FAERS Safety Report 11794944 (Version 2)
Quarter: 2019Q4

REPORT INFORMATION
  Report Type: Spontaneous
  Country: DE (occurrence: DE)
  Receive Date: 20151202
  Receipt Date: 20191018
  Transmission Date: 20200122
  Serious: Yes (Other)
  Sender: FDA-Public Use
  Company Number: DE-TEVA-611915GER

PATIENT
  Age: 1 Day
  Sex: Female
  Weight: 3.03 kg

DRUGS (8)
  1. OMEGA-3 FATTY ACIDS [Concomitant]
     Active Substance: OMEGA-3 FATTY ACIDS
     Indication: SCHIZOPHRENIA
     Dosage: 1000 MILLIGRAM DAILY;
     Route: 064
     Dates: start: 20140609, end: 20140723
  2. FOLGAMMA [Concomitant]
     Active Substance: CYANOCOBALAMIN\FOLIC ACID
     Indication: PROPHYLAXIS OF NEURAL TUBE DEFECT
     Dosage: 1.5 MILLIGRAM DAILY;
     Route: 064
     Dates: start: 20140609, end: 20140724
  3. DIPIPERON [Suspect]
     Active Substance: PIPAMPERONE
     Indication: SCHIZOPHRENIA
     Dosage: 40 MILLIGRAM DAILY;
     Route: 064
  4. NUVARING [Concomitant]
     Active Substance: ETHINYL ESTRADIOL\ETONOGESTREL
     Indication: CONTRACEPTION
     Dosage: 0.015 MG/D / 0.12 MG/D
     Route: 064
     Dates: start: 20140609, end: 20140723
  5. CLOZAPIN [Suspect]
     Active Substance: CLOZAPINE
     Indication: SCHIZOPHRENIA
     Dosage: DOSAGE HAD TO BE INCREASED FROM 100MG/DAY TO 350 MG/DAY DURING PREGNANCY
     Route: 064
     Dates: start: 20140609, end: 20150321
  6. ABILIFY 15 MG TABLETTEN [Concomitant]
     Indication: SCHIZOPHRENIA
     Dosage: 15 MILLIGRAM DAILY;
     Route: 064
  7. SEROQUEL XR [Concomitant]
     Active Substance: QUETIAPINE FUMARATE
     Indication: SCHIZOPHRENIA
     Dosage: 1200 MG/D MAX
     Route: 064
     Dates: start: 20140609, end: 20140719
  8. CYTOTEC [Concomitant]
     Active Substance: MISOPROSTOL
     Indication: LABOUR INDUCTION
     Route: 064

REACTIONS (5)
  - Respiratory disorder neonatal [Recovered/Resolved]
  - Maternal exposure during pregnancy [Unknown]
  - Neonatal disorder [Recovered/Resolved]
  - Hypotonia neonatal [Recovered/Resolved]
  - Nystagmus [Unknown]

NARRATIVE: CASE EVENT DATE: 2015
